FAERS Safety Report 11634267 (Version 1)
Quarter: 2015Q4

REPORT INFORMATION
  Report Type: Spontaneous
  Country: US (occurrence: US)
  Receive Date: 20151015
  Receipt Date: 20151015
  Transmission Date: 20160304
  Serious: Yes (Hospitalization)
  Sender: FDA-Public Use
  Company Number: US-ROXANE LABORATORIES, INC.-2015-RO-01727RO

PATIENT
  Age: 54 Year
  Sex: Female

DRUGS (1)
  1. LACTULOSE SOLUTION USP, 10 G/15 ML [Suspect]
     Active Substance: LACTULOSE
     Indication: HEPATIC ENCEPHALOPATHY
     Route: 065

REACTIONS (2)
  - Confusional state [Unknown]
  - Ammonia increased [Unknown]

NARRATIVE: CASE EVENT DATE: 20100227
